FAERS Safety Report 5390271-X (Version None)
Quarter: 2007Q3

REPORT INFORMATION
  Report Type: 
  Country: None (occurrence: None)
  Receive Date: 20070718
  Receipt Date: 20070709
  Transmission Date: 20080115
  Serious: Yes (Other)
  Sender: FDA-Public Use
  Company Number: US-ASTRAZENECA-2007UW15971

PATIENT
  Age: 55 Year
  Sex: Female

DRUGS (5)
  1. SEROQUEL [Suspect]
     Indication: BIPOLAR DISORDER
     Route: 048
     Dates: end: 20070601
  2. XANAX [Concomitant]
  3. WELLBUTRIN [Concomitant]
  4. PEXEVA [Concomitant]
  5. LAMICTAL [Concomitant]

REACTIONS (6)
  - BLINDNESS [None]
  - CATARACT [None]
  - GLAUCOMA [None]
  - INCREASED APPETITE [None]
  - SOMNOLENCE [None]
  - WEIGHT INCREASED [None]
